FAERS Safety Report 20006128 (Version 1)
Quarter: 2021Q4

REPORT INFORMATION
  Report Type: Spontaneous
  Country: US (occurrence: US)
  Receive Date: 20211028
  Receipt Date: 20211028
  Transmission Date: 20220303
  Serious: Yes (Other)
  Sender: FDA-Public Use
  Company Number: None

PATIENT
  Age: 22 Year
  Sex: Female
  Weight: 67.5 kg

DRUGS (1)
  1. CANNABIDIOL [Suspect]
     Active Substance: CANNABIDIOL
     Indication: Endometriosis
     Route: 048
     Dates: start: 20210602, end: 20210602

REACTIONS (2)
  - Product prescribing error [None]
  - Drug level increased [None]

NARRATIVE: CASE EVENT DATE: 20210602
